FAERS Safety Report 10037653 (Version 1)
Quarter: 2014Q1

REPORT INFORMATION
  Report Type: Spontaneous
  Country: US (occurrence: US)
  Receive Date: 20140326
  Receipt Date: 20140326
  Transmission Date: 20141002
  Serious: No
  Sender: FDA-Public Use
  Company Number: US-PFIZER INC-2014083507

PATIENT
  Age: 51 Year
  Sex: Male
  Weight: 97.96 kg

DRUGS (3)
  1. VIAGRA [Suspect]
     Indication: ERECTILE DYSFUNCTION
     Dosage: 100 MG, AS NEEDED
  2. VIAGRA [Suspect]
     Dosage: 50 MG, AS NEEDED
  3. VIAGRA [Suspect]
     Dosage: UNK,AS NEEDED

REACTIONS (1)
  - Headache [Unknown]
